FAERS Safety Report 17918117 (Version 1)
Quarter: 2020Q2

REPORT INFORMATION
  Report Type: Spontaneous
  Country: CN (occurrence: CN)
  Receive Date: 20200619
  Receipt Date: 20200619
  Transmission Date: 20200714
  Serious: Yes (Other)
  Sender: FDA-Public Use
  Company Number: CN-PFIZER INC-2020236587

PATIENT
  Age: 24 Year
  Sex: Female
  Weight: 47 kg

DRUGS (1)
  1. METHOTREXATE. [Suspect]
     Active Substance: METHOTREXATE
     Indication: ABORTION
     Dosage: 20 MG, 1X/DAY
     Route: 040
     Dates: start: 20200516, end: 20200520

REACTIONS (5)
  - Back pain [Unknown]
  - Product use in unapproved indication [Unknown]
  - Mouth ulceration [Recovering/Resolving]
  - Musculoskeletal pain [Unknown]
  - Off label use [Unknown]

NARRATIVE: CASE EVENT DATE: 20200516
